FAERS Safety Report 6147032-3 (Version None)
Quarter: 2009Q2

REPORT INFORMATION
  Report Type: 
  Country: None (occurrence: None)
  Receive Date: 20090402
  Receipt Date: 20090317
  Transmission Date: 20091009
  Serious: Yes (Other)
  Sender: FDA-Public Use
  Company Number: 2009S1004770

PATIENT
  Age: 45 Year
  Sex: Male

DRUGS (2)
  1. METFORMIN HCL [Suspect]
     Indication: TYPE 2 DIABETES MELLITUS
     Dosage: 1000 MG;ONCE
     Dates: start: 20080702, end: 20080901
  2. VILDAGLIPTIN (VILDAGLIPTIN) [Suspect]
     Indication: TYPE 2 DIABETES MELLITUS
     Dosage: 50 MG,ORAL
     Route: 048
     Dates: start: 20080702, end: 20080901

REACTIONS (1)
  - LIVER FUNCTION TEST ABNORMAL [None]
